FAERS Safety Report 16449163 (Version 1)
Quarter: 2019Q2

REPORT INFORMATION
  Report Type: Spontaneous
  Country: US (occurrence: US)
  Receive Date: 20190508
  Receipt Date: 20190508
  Transmission Date: 20190711
  Serious: Yes (Hospitalization, Disabling)
  Sender: FDA-Public Use
  Company Number: None

PATIENT
  Age: 87 Year
  Sex: Female
  Weight: 43.09 kg

DRUGS (10)
  1. LISINOPRIL. [Concomitant]
     Active Substance: LISINOPRIL
  2. CALCIUM [Concomitant]
     Active Substance: CALCIUM
  3. PROLIA [Suspect]
     Active Substance: DENOSUMAB
  4. OXIBUTIN [Concomitant]
  5. SYNTHROID [Concomitant]
     Active Substance: LEVOTHYROXINE SODIUM
  6. VITAMIN B12 [Concomitant]
     Active Substance: CYANOCOBALAMIN
  7. NIACIN. [Concomitant]
     Active Substance: NIACIN
  8. GLUCOSICONDIBITIN [Concomitant]
  9. THYROTINE [Concomitant]
  10. VIT D 3 [Concomitant]

REACTIONS (2)
  - Accident [None]
  - Femur fracture [None]

NARRATIVE: CASE EVENT DATE: 20180729
